FAERS Safety Report 17608794 (Version 1)
Quarter: 2020Q2

REPORT INFORMATION
  Report Type: Spontaneous
  Country: CA (occurrence: CA)
  Receive Date: 20200401
  Receipt Date: 20200401
  Transmission Date: 20200713
  Serious: Yes (Hospitalization, Other)
  Sender: FDA-Public Use
  Company Number: CA-TEVA-2020-CA-1216855

PATIENT
  Age: 60 Year
  Sex: Male
  Weight: 48 kg

DRUGS (4)
  1. COVERSYL [PERINDOPRIL ARGININE] [Concomitant]
     Active Substance: PERINDOPRIL ARGININE
  2. ASA [Concomitant]
     Active Substance: ASPIRIN
  3. AZITHROMYCIN ANHYDROUS. [Concomitant]
     Active Substance: AZITHROMYCIN ANHYDROUS
  4. ATORVASTATIN CALCIUM. [Suspect]
     Active Substance: ATORVASTATIN CALCIUM
     Indication: CORONARY ARTERY DISEASE
     Dosage: 80 MILLIGRAM DAILY;
     Route: 048

REACTIONS (10)
  - Alanine aminotransferase increased [Unknown]
  - Muscle spasms [Unknown]
  - Blood creatine phosphokinase increased [Unknown]
  - Hepatitis acute [Unknown]
  - Pulmonary embolism [Unknown]
  - Hepatitis B core antibody positive [Unknown]
  - Infection [Unknown]
  - Rhabdomyolysis [Unknown]
  - Aspartate aminotransferase increased [Unknown]
  - Muscular weakness [Unknown]
